FAERS Safety Report 21980357 (Version 2)
Quarter: 2023Q1

REPORT INFORMATION
  Report Type: Report from Study
  Country: FR (occurrence: FR)
  Receive Date: 20230211
  Receipt Date: 20230216
  Transmission Date: 20230417
  Serious: Yes (Other)
  Sender: FDA-Public Use
  Company Number: FR-MYLANLABS-2023M1010959

PATIENT
  Age: 49 Year
  Sex: Female

DRUGS (4)
  1. EMTRICITABINE\TENOFOVIR [Interacting]
     Active Substance: EMTRICITABINE\TENOFOVIR
     Indication: HIV infection
     Dosage: UNK
     Route: 065
  2. RITONAVIR [Suspect]
     Active Substance: RITONAVIR
     Indication: HIV infection
     Dosage: UNK
     Route: 065
  3. VIDEX [Interacting]
     Active Substance: DIDANOSINE
     Indication: HIV infection
     Dosage: UNK
     Route: 065
  4. DARUNAVIR [Concomitant]
     Active Substance: DARUNAVIR
     Indication: HIV infection
     Dosage: UNK
     Route: 065

REACTIONS (4)
  - Retinopathy [Not Recovered/Not Resolved]
  - Labelled drug-drug interaction medication error [Not Recovered/Not Resolved]
  - Visual field defect [Not Recovered/Not Resolved]
  - Dyschromatopsia [Not Recovered/Not Resolved]
